FAERS Safety Report 11029803 (Version 1)
Quarter: 2015Q2

REPORT INFORMATION
  Report Type: Spontaneous
  Country: US (occurrence: None)
  Receive Date: 20150413
  Receipt Date: 20150413
  Transmission Date: 20150821
  Serious: Yes (Other)
  Sender: FDA-Public Use
  Company Number: None

PATIENT
  Age: 39 Year
  Sex: Female
  Weight: 68.04 kg

DRUGS (1)
  1. ZICAM COLD REMEDY [Suspect]
     Active Substance: ZINC ACETATE\ZINC GLUCONATE
     Indication: NASOPHARYNGITIS
     Dosage: 1 LOZANGE
     Route: 048
     Dates: start: 20150409, end: 20150409

REACTIONS (3)
  - Blindness transient [None]
  - Migraine [None]
  - Visual impairment [None]

NARRATIVE: CASE EVENT DATE: 20150409
